FAERS Safety Report 6454704-X (Version None)
Quarter: 2009Q4

REPORT INFORMATION
  Report Type: 
  Country: None (occurrence: None)
  Receive Date: 20091118
  Receipt Date: 20091104
  Transmission Date: 20100525
  Serious: Yes (Other)
  Sender: FDA-Public Use
  Company Number: 002364

PATIENT
  Age: 53 Year
  Sex: Male

DRUGS (1)
  1. NEUPRO [Suspect]
     Dosage: (8 MG QD TRANSDERMAL)
     Route: 062
     Dates: start: 20070101

REACTIONS (2)
  - FOCAL NODULAR HYPERPLASIA [None]
  - HEPATIC ADENOMA [None]
